FAERS Safety Report 5192146-8 (Version None)
Quarter: 2006Q4

REPORT INFORMATION
  Report Type: 
  Country: None (occurrence: None)
  Receive Date: 20061221
  Receipt Date: 20061221
  Transmission Date: 20070319
  Serious: Yes (Hospitalization, Disabling)
  Sender: FDA-Public Use
  Company Number: None

PATIENT
  Age: 70 Year
  Sex: Female
  Weight: 66.6788 kg

DRUGS (1)
  1. ORENCIA [Suspect]

REACTIONS (1)
  - MYASTHENIA GRAVIS [None]
